FAERS Safety Report 7080824-5 (Version None)
Quarter: 2010Q4

REPORT INFORMATION
  Report Type: 
  Country: None (occurrence: None)
  Receive Date: 20101103
  Receipt Date: 20101026
  Transmission Date: 20110411
  Serious: Yes (Other)
  Sender: FDA-Public Use
  Company Number: US-BAYER-201022545BCC

PATIENT
  Age: 85 Year
  Sex: Female
  Weight: 60 kg

DRUGS (5)
  1. ASPIRIN [Suspect]
     Dosage: TOTAL DAILY DOSE: 324 MG  UNIT DOSE: 81 MG
     Route: 048
     Dates: start: 20101025
  2. THYROID MEDICATION [Concomitant]
  3. HIGH BLOOD PRESSURE MEDICATIONS [Concomitant]
  4. WATER PILL [Concomitant]
  5. PEPTO BISMOL [Concomitant]

REACTIONS (1)
  - RECTAL HAEMORRHAGE [None]
